FAERS Safety Report 5714693-X (Version None)
Quarter: 2008Q2

REPORT INFORMATION
  Report Type: 
  Country: None (occurrence: None)
  Receive Date: 20080423
  Receipt Date: 20080417
  Transmission Date: 20081010
  Serious: Yes (Death)
  Sender: FDA-Public Use
  Company Number: FR-MERCK-0804FRA00101

PATIENT
  Age: 83 Year
  Sex: Male

DRUGS (6)
  1. PRIMAXIN [Suspect]
     Indication: URINARY TRACT INFECTION
     Route: 042
     Dates: start: 20071213, end: 20071225
  2. OFLOXACIN [Suspect]
     Route: 042
     Dates: start: 20071225, end: 20071231
  3. AMOXICILLIN AND CLAVULANATE POTASSIUM [Concomitant]
     Indication: LUNG INFECTION
     Route: 042
     Dates: start: 20071227, end: 20071231
  4. FOSFOMYCIN [Concomitant]
     Indication: URINARY TRACT INFECTION
     Route: 042
     Dates: start: 20071213, end: 20071225
  5. FUROSEMIDE [Concomitant]
     Indication: HYPERTENSION
     Route: 048
  6. TRIMETAZIDINE HYDROCHLORIDE [Concomitant]
     Route: 048

REACTIONS (3)
  - INTESTINAL ISCHAEMIA [None]
  - PSEUDOMEMBRANOUS COLITIS [None]
  - SHOCK HAEMORRHAGIC [None]
